FAERS Safety Report 10953158 (Version 1)
Quarter: 2015Q1

REPORT INFORMATION
  Report Type: Spontaneous
  Country: US (occurrence: US)
  Receive Date: 20150325
  Receipt Date: 20150325
  Transmission Date: 20150721
  Serious: Yes (Other)
  Sender: FDA-Public Use
  Company Number: US-APOTEX-2015AP007618

PATIENT
  Age: 66 Year
  Sex: Male

DRUGS (5)
  1. CYCLOSPORINE. [Suspect]
     Active Substance: CYCLOSPORINE
     Indication: BURKITT^S LYMPHOMA
     Dosage: 4 CYCLES OVER 5 MONTHS
     Route: 065
  2. DEXAMETHASONE. [Suspect]
     Active Substance: DEXAMETHASONE
     Indication: BURKITT^S LYMPHOMA
     Dosage: 4 CYCLES OVER 5 MONTHS
     Route: 065
  3. RITUXIMAB [Concomitant]
     Active Substance: RITUXIMAB
     Indication: BURKITT^S LYMPHOMA
     Dosage: UNK
     Route: 065
  4. DOXORUBICIN [Suspect]
     Active Substance: DOXORUBICIN
     Indication: BURKITT^S LYMPHOMA
     Dosage: 4 CYCLES OVER 5 MONTHS
     Route: 065
  5. VINCRISTINE [Suspect]
     Active Substance: VINCRISTINE
     Indication: BURKITT^S LYMPHOMA
     Dosage: 4 CYCLES OVER 5 MONTHS
     Route: 065

REACTIONS (9)
  - Pyrexia [Unknown]
  - Varicella [Unknown]
  - Epstein-Barr viraemia [Unknown]
  - Hodgkin^s disease [Unknown]
  - Epstein-Barr virus associated lymphoma [Unknown]
  - Cytomegalovirus chorioretinitis [Unknown]
  - Upper respiratory tract infection [Unknown]
  - Pneumonia [Unknown]
  - Failure to thrive [Unknown]
